FAERS Safety Report 15117711 (Version 2)
Quarter: 2018Q3

REPORT INFORMATION
  Report Type: Report from Study
  Country: US (occurrence: US)
  Receive Date: 20180706
  Receipt Date: 20180726
  Transmission Date: 20181010
  Serious: Yes (Death, Hospitalization)
  Sender: FDA-Public Use
  Company Number: US-ACTELION-A-US2018-172415

PATIENT
  Age: 60 Year
  Sex: Male
  Weight: 77.55 kg

DRUGS (13)
  1. LETAIRIS [Concomitant]
     Active Substance: AMBRISENTAN
  2. UPTRAVI [Suspect]
     Active Substance: SELEXIPAG
     Dosage: 400 MCG, BID
     Route: 048
     Dates: start: 20180531, end: 20180610
  3. ADCIRCA [Concomitant]
     Active Substance: TADALAFIL
  4. UPTRAVI [Suspect]
     Active Substance: SELEXIPAG
     Indication: PULMONARY HYPERTENSION
     Dosage: 200 MCG, BID
     Route: 048
     Dates: start: 20161112
  5. UPTRAVI [Suspect]
     Active Substance: SELEXIPAG
     Dosage: 1600 MCG, BID
     Route: 048
     Dates: start: 20180514
  6. LISINOPRIL. [Concomitant]
     Active Substance: LISINOPRIL
  7. UPTRAVI [Suspect]
     Active Substance: SELEXIPAG
     Dosage: 200 MCG, BID
     Route: 048
  8. BUMEX [Concomitant]
     Active Substance: BUMETANIDE
  9. NIFEDIPINE. [Concomitant]
     Active Substance: NIFEDIPINE
  10. OMEPRAZOLE. [Concomitant]
     Active Substance: OMEPRAZOLE
  11. LEVOTHROID [Concomitant]
     Active Substance: LEVOTHYROXINE SODIUM
  12. CELLCEPT [Concomitant]
     Active Substance: MYCOPHENOLATE MOFETIL\MYCOPHENOLATE MOFETIL HYDROCHLORIDE
  13. ADEMPAS [Concomitant]
     Active Substance: RIOCIGUAT
     Dosage: UNK
     Dates: start: 201710

REACTIONS (10)
  - Respiratory disorder [Unknown]
  - Dyspnoea [Unknown]
  - Pneumonia [Unknown]
  - Acute respiratory failure [Unknown]
  - Condition aggravated [Unknown]
  - Drug dose omission [Unknown]
  - Lung neoplasm malignant [Fatal]
  - Pain [Unknown]
  - Pleural effusion [Unknown]
  - Insomnia [Unknown]

NARRATIVE: CASE EVENT DATE: 20180514
